FAERS Safety Report 9331619 (Version 1)
Quarter: 2013Q2

REPORT INFORMATION
  Report Type: Spontaneous
  Country: JP (occurrence: JP)
  Receive Date: 20130605
  Receipt Date: 20130605
  Transmission Date: 20140414
  Serious: Yes (Other)
  Sender: FDA-Public Use
  Company Number: JP-PFIZER INC-2013168502

PATIENT
  Sex: 0

DRUGS (1)
  1. FOSPHENYTOIN SODIUM [Suspect]
     Indication: EPILEPSY
     Dosage: 750 MG, UNK
     Route: 042
     Dates: start: 201201

REACTIONS (4)
  - Aphagia [Unknown]
  - Injection site swelling [Unknown]
  - Dizziness [Unknown]
  - Drug eruption [Unknown]
